FAERS Safety Report 14820855 (Version 1)
Quarter: 2018Q2

REPORT INFORMATION
  Report Type: Spontaneous
  Country: US (occurrence: US)
  Receive Date: 20180427
  Receipt Date: 20180427
  Transmission Date: 20180711
  Serious: No
  Sender: FDA-Public Use
  Company Number: US-BAUSCH-BL-2017-014206

PATIENT
  Sex: Male

DRUGS (1)
  1. ZYCLARA [Suspect]
     Active Substance: IMIQUIMOD
     Indication: ANOGENITAL WARTS
     Route: 061

REACTIONS (2)
  - Anogenital warts [Unknown]
  - Incorrect drug administration duration [Unknown]
